FAERS Safety Report 7422938-3 (Version None)
Quarter: 2011Q2

REPORT INFORMATION
  Report Type: 
  Country: None (occurrence: None)
  Receive Date: 20110419
  Receipt Date: 20110406
  Transmission Date: 20111010
  Serious: Yes (Other)
  Sender: FDA-Public Use
  Company Number: US-AMGEN-USASP2011018210

PATIENT
  Age: 39 Year
  Sex: Female

DRUGS (1)
  1. ENBREL [Suspect]
     Indication: RHEUMATOID ARTHRITIS
     Dosage: 25 MG, 2 TIMES/WK
     Route: 058
     Dates: start: 20040819

REACTIONS (8)
  - DIZZINESS [None]
  - PREMATURE LABOUR [None]
  - ARTHRALGIA [None]
  - URINARY TRACT INFECTION [None]
  - ALOPECIA [None]
  - SKIN DISORDER [None]
  - PREMATURE RUPTURE OF MEMBRANES [None]
  - FATIGUE [None]
